FAERS Safety Report 5693581-1 (Version None)
Quarter: 2008Q2

REPORT INFORMATION
  Report Type: 
  Country: None (occurrence: None)
  Receive Date: 20080401
  Receipt Date: 20080401
  Transmission Date: 20081010
  Serious: Yes (Hospitalization)
  Sender: FDA-Public Use
  Company Number: None

PATIENT
  Age: 72 Year
  Sex: Male
  Weight: 108.8 kg

DRUGS (3)
  1. LEVOFLOXACIN [Suspect]
     Indication: PNEUMONIA
     Dosage: 250 MG IVPB  2/16 -
     Dates: start: 20080216, end: 20080307
  2. LEVOFLOXACIN [Suspect]
     Indication: URINARY TRACT INFECTION
     Dosage: 250 MG IVPB  2/16 -
     Dates: start: 20080216, end: 20080307
  3. CLINDAMYCIN HCL [Suspect]
     Indication: PNEUMONIA
     Dosage: 300MG
     Dates: start: 20080215, end: 20080307

REACTIONS (1)
  - CLOSTRIDIUM DIFFICILE COLITIS [None]
